FAERS Safety Report 8306051 (Version 3)
Quarter: 2012Q4

REPORT INFORMATION
  Report Type: 
  Country: US (occurrence: US)
  Receive Date: 20111221
  Receipt Date: 20121105
  Transmission Date: 20130627
  Serious: Yes (Hospitalization)
  Sender: FDA-Public Use
  Company Number: US-ELI_LILLY_AND_COMPANY-US201112004300

PATIENT
  Sex: Female
  Weight: 23.7 kg

DRUGS (7)
  1. HUMATROPE [Suspect]
     Indication: DWARFISM
     Dosage: 0.9 mg, unknown
     Route: 058
  2. HUMATROPE [Suspect]
     Dosage: 0.9 mg, unknown
     Route: 058
  3. PROVENTIL                          /00139502/ [Concomitant]
     Dosage: UNK, unknown
     Route: 065
  4. FLOVENT [Concomitant]
     Dosage: UNK, unknown
     Route: 065
  5. SYNTHROID [Concomitant]
     Dosage: UNK, unknown
     Route: 065
  6. PRILOSEC [Concomitant]
     Dosage: UNK, unknown
     Route: 065
  7. MIRALAX [Concomitant]
     Dosage: UNK, unknown
     Route: 065

REACTIONS (2)
  - Snoring [Recovered/Resolved]
  - Pneumonia streptococcal [Recovered/Resolved]
